FAERS Safety Report 14401035 (Version 2)
Quarter: 2018Q1

REPORT INFORMATION
  Report Type: Report from Study
  Country: CN (occurrence: CN)
  Receive Date: 20180117
  Receipt Date: 20180205
  Transmission Date: 20180509
  Serious: No
  Sender: FDA-Public Use
  Company Number: CN-ROCHE-2043269

PATIENT
  Age: 66 Year
  Sex: Male
  Weight: 69 kg

DRUGS (2)
  1. AVASTIN [Suspect]
     Active Substance: BEVACIZUMAB
     Indication: COLON CANCER
     Dosage: 400 MG/ 300 MG
     Route: 041
     Dates: start: 20170216
  2. AVASTIN [Suspect]
     Active Substance: BEVACIZUMAB
     Route: 041

REACTIONS (2)
  - White blood cell count increased [Unknown]
  - Subileus [Recovered/Resolved]

NARRATIVE: CASE EVENT DATE: 20180101
